FAERS Safety Report 13165391 (Version 3)
Quarter: 2017Q3

REPORT INFORMATION
  Report Type: Spontaneous
  Country: US (occurrence: US)
  Receive Date: 20170131
  Receipt Date: 20170809
  Transmission Date: 20171127
  Serious: Yes (Other)
  Sender: FDA-Public Use
  Company Number: US-ROCHE-1886246

PATIENT
  Sex: Female
  Weight: 50.85 kg

DRUGS (2)
  1. ESBRIET [Suspect]
     Active Substance: PIRFENIDONE
     Dosage: DOSE REDUCED FROM THREE CAPSULES DAILY TO TWO CAPSULES.
     Route: 048
  2. ESBRIET [Suspect]
     Active Substance: PIRFENIDONE
     Indication: IDIOPATHIC PULMONARY FIBROSIS
     Route: 048
     Dates: start: 20161221

REACTIONS (4)
  - Weight decreased [Unknown]
  - Lower limb fracture [Unknown]
  - Nausea [Unknown]
  - Hypotension [Unknown]
